FAERS Safety Report 4511629-4 (Version None)
Quarter: 2004Q4

REPORT INFORMATION
  Report Type: 
  Country: None (occurrence: None)
  Receive Date: 20041129
  Receipt Date: 20041019
  Transmission Date: 20050328
  Serious: No
  Sender: FDA-Public Use
  Company Number: US-BRISTOL-MYERS SQUIBB COMPANY-12738365

PATIENT
  Sex: Female

DRUGS (3)
  1. ABILIFY [Suspect]
     Dosage: INITIATED AT 10 MG/DAY IN AUG-2004; INCREASED TO 15 MG; DECREASED BACK TO 10 MG.
     Route: 048
     Dates: start: 20040801
  2. DEPAKOTE [Concomitant]
  3. ZOLOFT [Concomitant]

REACTIONS (3)
  - DYSPHAGIA [None]
  - DYSPHASIA [None]
  - TONGUE DISORDER [None]
